FAERS Safety Report 5610948-8 (Version None)
Quarter: 2008Q1

REPORT INFORMATION
  Report Type: 
  Country: None (occurrence: None)
  Receive Date: 20080201
  Receipt Date: 20080128
  Transmission Date: 20080703
  Serious: Yes (Death, Life-Threatening)
  Sender: FDA-Public Use
  Company Number: IN-GENENTECH-255123

PATIENT
  Age: 67 Year
  Sex: Male

DRUGS (2)
  1. METALYSE [Suspect]
     Indication: ACUTE MYOCARDIAL INFARCTION
     Dosage: 0.5 MG/KG, UNK
     Route: 040
     Dates: start: 20071231, end: 20071231
  2. HEPARIN [Concomitant]
     Indication: DRUG USE FOR UNKNOWN INDICATION
     Dosage: 30 MG, UNK
     Route: 040
     Dates: start: 20071231

REACTIONS (2)
  - CARDIAC ARREST [None]
  - DEATH [None]
